FAERS Safety Report 9067224 (Version 1)
Quarter: 2013Q1

REPORT INFORMATION
  Report Type: Report from Study
  Country: US (occurrence: US)
  Receive Date: 20130131
  Receipt Date: 20130131
  Transmission Date: 20140127
  Serious: No
  Sender: FDA-Public Use
  Company Number: US-ABBOTT-12P-163-0999131-00

PATIENT
  Age: 59 Year
  Sex: Male

DRUGS (3)
  1. HUMIRA [Suspect]
     Indication: PSORIASIS
     Route: 058
     Dates: start: 2009
  2. HUMIRA [Suspect]
     Route: 058
     Dates: start: 201012
  3. MOTRIN [Concomitant]
     Indication: HEADACHE

REACTIONS (3)
  - Psoriasis [Not Recovered/Not Resolved]
  - Exfoliative rash [Unknown]
  - Dry skin [Unknown]
